FAERS Safety Report 6881980-1 (Version None)
Quarter: 2010Q3

REPORT INFORMATION
  Report Type: 
  Country: None (occurrence: None)
  Receive Date: 20100729
  Receipt Date: 20100723
  Transmission Date: 20110219
  Serious: Yes (Hospitalization)
  Sender: FDA-Public Use
  Company Number: CA-B.I. PHARMACEUTICALS,INC./RIDGEFIELD-2010-CN-00477CN

PATIENT
  Age: 66 Year
  Sex: Female

DRUGS (6)
  1. SPIRIVA [Suspect]
     Indication: CHRONIC OBSTRUCTIVE PULMONARY DISEASE
     Dates: start: 20100201, end: 20100601
  2. FUROSEMIDE [Concomitant]
     Dosage: 80 MG
  3. LIPITOR [Concomitant]
     Dosage: 20 MG
  4. EZETROL [Concomitant]
     Dosage: 10 MG
  5. COUMADIN [Concomitant]
     Dosage: 3.5 MG
  6. EFFEXOR [Concomitant]
     Dosage: 37.5 MG

REACTIONS (2)
  - PNEUMONIA [None]
  - PRURITUS [None]
